FAERS Safety Report 5030874-5 (Version None)
Quarter: 2006Q2

REPORT INFORMATION
  Report Type: 
  Country: None (occurrence: None)
  Receive Date: 20060619
  Receipt Date: 20060602
  Transmission Date: 20061013
  Serious: Yes (Hospitalization)
  Sender: FDA-Public Use
  Company Number: RENA-11785

PATIENT
  Age: 59 Year
  Sex: Female

DRUGS (6)
  1. RENAGEL [Suspect]
     Dosage: 800 MG TID PO
     Route: 048
  2. TAMOXIFEN CITRATE [Suspect]
     Dosage: 20 MG QD PO
     Route: 048
  3. KAYEXALATE [Suspect]
  4. TENORMIN [Suspect]
     Dosage: 50 MG QD PO
     Route: 048
  5. HYDROCORTISONE [Suspect]
     Dosage: 10 MG BID PO
     Route: 048
  6. NEURONTIN [Suspect]

REACTIONS (6)
  - ANAEMIA MACROCYTIC [None]
  - CHILLS [None]
  - INFECTION [None]
  - LEUKOPENIA [None]
  - NEUTROPENIA [None]
  - PYREXIA [None]
